FAERS Safety Report 16559029 (Version 3)
Quarter: 2019Q3

REPORT INFORMATION
  Report Type: Spontaneous
  Country: AU (occurrence: AU)
  Receive Date: 20190711
  Receipt Date: 20190814
  Transmission Date: 20191004
  Serious: Yes (Hospitalization, Other)
  Sender: FDA-Public Use
  Company Number: AU-JNJFOC-20190635385

PATIENT
  Age: 54 Year
  Sex: Male

DRUGS (6)
  1. CLOZARIL [Suspect]
     Active Substance: CLOZAPINE
     Indication: SCHIZOPHRENIA
     Route: 048
     Dates: start: 19990927
  2. AMISULPRIDE [Suspect]
     Active Substance: AMISULPRIDE
     Indication: MANIA
     Route: 065
  3. SODIUM VALPROATE [Suspect]
     Active Substance: VALPROATE SODIUM
     Indication: PRODUCT USED FOR UNKNOWN INDICATION
     Route: 065
  4. HALDOL DECANOATE [Suspect]
     Active Substance: HALOPERIDOL DECANOATE
     Indication: AGITATION
     Dosage: 50.00 MG/ML
     Route: 030
  5. CLOZARIL [Suspect]
     Active Substance: CLOZAPINE
     Route: 048
  6. QUETIAPINE. [Suspect]
     Active Substance: QUETIAPINE
     Indication: PRODUCT USED FOR UNKNOWN INDICATION

REACTIONS (16)
  - Platelet count increased [Unknown]
  - Mania [Unknown]
  - Epstein-Barr virus infection [Unknown]
  - Lymphocyte count increased [Unknown]
  - Psychotic symptom [Unknown]
  - Red blood cell count decreased [Unknown]
  - Haemoglobin decreased [Unknown]
  - Leukopenia [Unknown]
  - Autonomic neuropathy [Unknown]
  - Schizoaffective disorder [Unknown]
  - Drug ineffective [Unknown]
  - Monocyte count increased [Unknown]
  - Neuroleptic malignant syndrome [Unknown]
  - Agitation [Unknown]
  - Neutropenia [Unknown]
  - Antipsychotic drug level below therapeutic [Unknown]

NARRATIVE: CASE EVENT DATE: 201806
